FAERS Safety Report 9390712 (Version 1)
Quarter: 2013Q3

REPORT INFORMATION
  Report Type: Spontaneous
  Country: US (occurrence: None)
  Receive Date: 20130705
  Receipt Date: 20130705
  Transmission Date: 20140515
  Serious: Yes (Death, Hospitalization)
  Sender: FDA-Public Use
  Company Number: None

PATIENT
  Age: 70 Year
  Sex: Male
  Weight: 89.9 kg

DRUGS (2)
  1. CYTARABINE [Suspect]
     Dates: end: 20130517
  2. DAUNORUBICIN [Suspect]
     Dates: end: 20130512

REACTIONS (10)
  - Febrile neutropenia [None]
  - Lung infection [None]
  - Candida infection [None]
  - Stenotrophomonas infection [None]
  - Respiratory disorder [None]
  - Dyspnoea [None]
  - Pneumonia [None]
  - Mental status changes [None]
  - General physical health deterioration [None]
  - Pathogen resistance [None]
